FAERS Safety Report 8532294-5 (Version None)
Quarter: 2012Q3

REPORT INFORMATION
  Report Type: 
  Country: None (occurrence: None)
  Receive Date: 20120724
  Receipt Date: 20120713
  Transmission Date: 20120928
  Serious: Yes (Hospitalization)
  Sender: FDA-Public Use
  Company Number: DE-AMGEN-DEUSP2012045174

PATIENT
  Sex: Female

DRUGS (17)
  1. RAMIPRIL [Concomitant]
     Indication: HYPERTENSION
     Dosage: 5 MG, UNK
     Route: 048
     Dates: start: 20120412
  2. RITUXIMAB [Suspect]
     Indication: B-CELL LYMPHOMA
     Dosage: 742.5 MG, Q2WK
     Route: 042
     Dates: start: 20120425
  3. TRIMETHOPRIM [Concomitant]
     Indication: ANTIFUNGAL PROPHYLAXIS
     Dosage: 960 MG, 2 TIMES/WK
     Route: 051
     Dates: start: 20120412
  4. LEVOTHYROXINE                      /00068002/ [Concomitant]
     Indication: HYPOTHYROIDISM
     Dosage: 100 MUG, QD
     Route: 048
     Dates: start: 20120412
  5. SIMVASTATIN [Concomitant]
     Indication: ARTERIOSCLEROSIS CORONARY ARTERY
     Dosage: 20 MG, UNK
     Route: 048
     Dates: start: 20120412
  6. ENOXAPARIN SODIUM [Concomitant]
     Indication: ARRHYTHMIA PROPHYLAXIS
     Dosage: UNK
     Route: 058
  7. ACETYLSALICYLIC ACID SRT [Concomitant]
     Indication: ARTERIOSCLEROSIS CORONARY ARTERY
     Dosage: 100 MG, UNK
     Route: 048
     Dates: start: 20120412
  8. ACYCLOVIR [Concomitant]
     Indication: ANTIVIRAL PROPHYLAXIS
     Dosage: 400 MG, QID
     Route: 051
     Dates: start: 20120412
  9. VINCRISTINE [Suspect]
     Indication: B-CELL LYMPHOMA
     Dosage: 3.54 MG, Q2WK
     Route: 042
     Dates: start: 20120426
  10. PREDNISOLONE [Suspect]
     Indication: B-CELL LYMPHOMA
     Dosage: 100 MG, UNK
     Route: 051
     Dates: start: 20120426, end: 20120430
  11. PEGFILGRASTIM [Suspect]
     Indication: B-CELL LYMPHOMA
     Dosage: UNK
     Route: 058
     Dates: start: 20120429
  12. PANTOPRAZOLE [Concomitant]
     Indication: PROPHYLAXIS AGAINST GASTROINTESTINAL ULCER
     Dosage: UNK
     Route: 051
  13. NEBIVOLOL [Concomitant]
     Indication: ATRIAL FIBRILLATION
     Route: 048
  14. TORSEMIDE [Concomitant]
     Indication: HYPERTENSION
     Dosage: 10 MG, UNK
     Route: 048
     Dates: start: 20120412
  15. CYCLOPHOSPHAMIDE [Suspect]
     Indication: B-CELL LYMPHOMA
     Dosage: 1493 MG, Q2WK
     Route: 042
     Dates: start: 20120426
  16. DOXORUBICIN HYDROCHLORIDE [Suspect]
     Indication: B-CELL LYMPHOMA
     Dosage: 100 MG, Q2WK
     Route: 042
     Dates: start: 20120426
  17. TIOTROPIUM BROMIDE [Concomitant]
     Indication: CHRONIC OBSTRUCTIVE PULMONARY DISEASE
     Dosage: 18 MUG, UNK
     Route: 048
     Dates: start: 20120412

REACTIONS (1)
  - FEBRILE NEUTROPENIA [None]
